FAERS Safety Report 18920105 (Version 1)
Quarter: 2021Q1

REPORT INFORMATION
  Report Type: Spontaneous
  Country: US (occurrence: US)
  Receive Date: 20210222
  Receipt Date: 20210222
  Transmission Date: 20210420
  Serious: No
  Sender: FDA-Public Use
  Company Number: US-TEVA-2021-US-1882590

PATIENT
  Sex: Female

DRUGS (20)
  1. DIAZEPAM. [Concomitant]
     Active Substance: DIAZEPAM
     Dosage: DIAZEPAM 10
  2. MAG DOCUSATE SODIUM GRAPE [Concomitant]
  3. MUPIROCIN. [Concomitant]
     Active Substance: MUPIROCIN
  4. ZOLPIDEM [Concomitant]
     Active Substance: ZOLPIDEM TARTRATE
     Dosage: THIA/HCTZ 5.25
  5. LEVOTHYROXIN [Concomitant]
     Active Substance: LEVOTHYROXINE
  6. METHYLPREDNISONE [Concomitant]
     Active Substance: METHYLPREDNISOLONE
  7. THIA/HCTZ [Concomitant]
     Dosage: THIA/HCTZ 5.25
  8. COPAXONE [Concomitant]
     Active Substance: GLATIRAMER ACETATE
     Dosage: 17.1429 MILLIGRAM/MILLILITERS DAILY; INJ 1 SYR SC SQ 3 TIMES PER WEEK
     Route: 058
     Dates: start: 20050728
  9. ATORVASTATIN [Concomitant]
     Active Substance: ATORVASTATIN
     Dosage: ATORVASTATIN 20
  10. LANSOPRAZOLE. [Concomitant]
     Active Substance: LANSOPRAZOLE
     Dosage: LANSOPRAZOLE 30
  11. AMOXACILLIN CLAV [Concomitant]
     Dosage: AMOXACILLIN CLAV 875?125
  12. DEPRODONE [Concomitant]
     Dosage: 500
  13. GABAPENTIN. [Concomitant]
     Active Substance: GABAPENTIN
  14. LEVOFLOXACIN. [Concomitant]
     Active Substance: LEVOFLOXACIN
  15. NEURONTIN [Concomitant]
     Active Substance: GABAPENTIN
  16. VITAMIN D [Concomitant]
     Active Substance: VITAMIN D NOS
  17. COPAXONE [Concomitant]
     Active Substance: GLATIRAMER ACETATE
     Indication: MULTIPLE SCLEROSIS
     Dosage: 17.1429 MILLIGRAM/MILLILITERS DAILY;
     Route: 058
     Dates: start: 20150828
  18. SORBITOL. [Concomitant]
     Active Substance: SORBITOL
     Dosage: FORM OF ADMIN: SOLUTION
  19. CARBAMAZEPINE. [Suspect]
     Active Substance: CARBAMAZEPINE
     Indication: FACIAL PAIN
     Route: 065
  20. TRIAMT/HCTZ [Concomitant]
     Active Substance: HYDROCHLOROTHIAZIDE\TRIAMTERENE
     Dosage: THIA/HCTZ 5.25

REACTIONS (1)
  - Flushing [Not Recovered/Not Resolved]
